FAERS Safety Report 7944119-7 (Version None)
Quarter: 2011Q4

REPORT INFORMATION
  Report Type: 
  Country: None (occurrence: None)
  Receive Date: 20111128
  Receipt Date: 20111117
  Transmission Date: 20120403
  Serious: Yes (Hospitalization, Other)
  Sender: FDA-Public Use
  Company Number: US-ASTRAZENECA-2011SE11803

PATIENT
  Age: 27 Year
  Sex: Female
  Weight: 81.6 kg

DRUGS (10)
  1. SEROQUEL [Suspect]
     Indication: DISSOCIATIVE DISORDER
     Dosage: AT NIGHT
     Route: 048
     Dates: start: 20070101, end: 20070101
  2. SEROQUEL [Suspect]
     Indication: BIPOLAR II DISORDER
     Dosage: AT NIGHT
     Route: 048
     Dates: start: 20070101, end: 20070101
  3. LITHIUM [Concomitant]
     Indication: BIPOLAR DISORDER
  4. SEROQUEL [Suspect]
     Route: 048
     Dates: start: 20110101, end: 20110101
  5. INDOMETHACIN [Concomitant]
     Indication: MIGRAINE
  6. NEURONTIN [Concomitant]
  7. SEROQUEL [Suspect]
     Route: 048
     Dates: start: 20110101, end: 20110101
  8. SEROQUEL [Suspect]
     Route: 048
     Dates: start: 20090101, end: 20110101
  9. RELPAX [Concomitant]
     Indication: MIGRAINE
  10. SEROQUEL [Suspect]
     Route: 048
     Dates: start: 20090101, end: 20110101

REACTIONS (10)
  - MATERNAL EXPOSURE DURING PREGNANCY [None]
  - MANIA [None]
  - WEIGHT DECREASED [None]
  - INCORRECT DOSE ADMINISTERED [None]
  - INFLUENZA LIKE ILLNESS [None]
  - DISSOCIATIVE DISORDER [None]
  - SUICIDAL IDEATION [None]
  - SOMNOLENCE [None]
  - DRUG DOSE OMISSION [None]
  - DEPRESSION [None]
